FAERS Safety Report 9084764 (Version 1)
Quarter: 2013Q1

REPORT INFORMATION
  Report Type: Report from Study
  Country: US (occurrence: US)
  Receive Date: 20130131
  Receipt Date: 20130131
  Transmission Date: 20140127
  Serious: No
  Sender: FDA-Public Use
  Company Number: US-ABBOTT-12P-163-1002399-00

PATIENT
  Sex: Male

DRUGS (4)
  1. HUMIRA [Suspect]
     Indication: CROHN^S DISEASE
     Dates: start: 201204
  2. HUMIRA [Suspect]
     Dosage: BOOSTER DOSE
     Dates: start: 201210, end: 201210
  3. HUMIRA [Suspect]
  4. IMURAN [Concomitant]
     Indication: CROHN^S DISEASE
     Dosage: 100MG DAILY
     Route: 048

REACTIONS (3)
  - Weight gain poor [Not Recovered/Not Resolved]
  - Weight decreased [Not Recovered/Not Resolved]
  - Wrong technique in drug usage process [Unknown]
